FAERS Safety Report 25725201 (Version 2)
Quarter: 2025Q3

REPORT INFORMATION
  Report Type: Spontaneous
  Country: US (occurrence: US)
  Receive Date: 20250826
  Receipt Date: 20250909
  Transmission Date: 20251021
  Serious: Yes (Life-Threatening, Hospitalization)
  Sender: TEVA
  Company Number: US-TEVA-VS-3364512

PATIENT
  Age: 74 Year
  Sex: Female

DRUGS (1)
  1. ATORVASTATIN [Suspect]
     Active Substance: ATORVASTATIN
     Indication: Product used for unknown indication
     Route: 065

REACTIONS (6)
  - Immune-mediated myositis [Recovering/Resolving]
  - Epistaxis [Recovering/Resolving]
  - Eye contusion [Recovering/Resolving]
  - Autoimmune disorder [Recovering/Resolving]
  - Acute respiratory failure [Recovering/Resolving]
  - Haemoptysis [Recovering/Resolving]
